FAERS Safety Report 8854261 (Version 1)
Quarter: 2012Q4

REPORT INFORMATION
  Report Type: Spontaneous
  Country: US (occurrence: None)
  Receive Date: 20121022
  Receipt Date: 20121022
  Transmission Date: 20130627
  Serious: No
  Sender: FDA-Public Use
  Company Number: None

PATIENT
  Age: 64 Year
  Sex: Male
  Weight: 84.5 kg

DRUGS (1)
  1. DABIGATRAN [Suspect]
     Dates: start: 20110820, end: 20120211

REACTIONS (2)
  - International normalised ratio abnormal [None]
  - Thrombosis [None]
